FAERS Safety Report 20686430 (Version 3)
Quarter: 2022Q3

REPORT INFORMATION
  Report Type: Spontaneous
  Country: US (occurrence: US)
  Receive Date: 20220407
  Receipt Date: 20220708
  Transmission Date: 20221027
  Serious: No
  Sender: FDA-Public Use
  Company Number: US-PFIZER INC-202200192679

PATIENT
  Age: 59 Year
  Sex: Male
  Weight: 117.55 kg

DRUGS (3)
  1. XELJANZ [Suspect]
     Active Substance: TOFACITINIB CITRATE
     Indication: Rheumatoid arthritis
     Dosage: 5 MG,UNK
  2. XELJANZ [Suspect]
     Active Substance: TOFACITINIB CITRATE
     Dosage: 10 MG, DAILY
     Route: 048
  3. LISINOPRIL [Concomitant]
     Active Substance: LISINOPRIL
     Dosage: 5 MG, 1X/DAY (ONE TABLET ONCE A DAY)
     Route: 048
     Dates: start: 20220510

REACTIONS (3)
  - Arthritis [Unknown]
  - Gait disturbance [Unknown]
  - Pain [Unknown]
